FAERS Safety Report 7910326-2 (Version None)
Quarter: 2011Q4

REPORT INFORMATION
  Report Type: 
  Country: None (occurrence: None)
  Receive Date: 20111111
  Receipt Date: 20111102
  Transmission Date: 20120403
  Serious: Yes (Other)
  Sender: FDA-Public Use
  Company Number: GB-GENZYME-CLOF-1001881

PATIENT
  Sex: Male

DRUGS (1)
  1. EVOLTRA [Suspect]
     Indication: ACUTE LEUKAEMIA
     Dosage: UNK
     Route: 065

REACTIONS (8)
  - BONE MARROW FAILURE [None]
  - PYREXIA [None]
  - DIARRHOEA [None]
  - FATIGUE [None]
  - NEUTROPENIA [None]
  - DECREASED APPETITE [None]
  - DIZZINESS [None]
  - INFECTION [None]
